FAERS Safety Report 16507182 (Version 1)
Quarter: 2019Q3

REPORT INFORMATION
  Report Type: Spontaneous
  Country: US (occurrence: US)
  Receive Date: 20190520
  Receipt Date: 20190520
  Transmission Date: 20191004
  Serious: No
  Sender: FDA-Public Use
  Company Number: None

PATIENT
  Age: 60 Year
  Sex: Female

DRUGS (12)
  1. FLEXERIL [Concomitant]
     Active Substance: CYCLOBENZAPRINE HYDROCHLORIDE
  2. METHADONE [Concomitant]
     Active Substance: METHADONE HYDROCHLORIDE
  3. BABY ASPIRIN [Concomitant]
     Active Substance: ASPIRIN
  4. ATENOLOL. [Concomitant]
     Active Substance: ATENOLOL
  5. ADVIL [Concomitant]
     Active Substance: IBUPROFEN
  6. BIOTIN [Concomitant]
     Active Substance: BIOTIN
  7. ACETAMINOPHEN\HYDROCODONE BITARTRATE [Suspect]
     Active Substance: ACETAMINOPHEN\HYDROCODONE BITARTRATE
     Indication: PROCEDURAL PAIN
     Route: 048
     Dates: start: 20170131, end: 201707
  8. ACETAMINOPHEN\HYDROCODONE BITARTRATE [Suspect]
     Active Substance: ACETAMINOPHEN\HYDROCODONE BITARTRATE
     Indication: PAIN IN EXTREMITY
     Route: 048
     Dates: start: 20170131, end: 201707
  9. NITRO [Concomitant]
     Active Substance: NITROGLYCERIN
  10. SIMVASTATIN. [Concomitant]
     Active Substance: SIMVASTATIN
  11. METFORMIN [Concomitant]
     Active Substance: METFORMIN HYDROCHLORIDE
  12. VICODIN [Concomitant]
     Active Substance: ACETAMINOPHEN\HYDROCODONE BITARTRATE

REACTIONS (3)
  - Chest pain [None]
  - Product substitution issue [None]
  - Pain in extremity [None]
